FAERS Safety Report 9678918 (Version 2)
Quarter: 2013Q4

REPORT INFORMATION
  Report Type: Spontaneous
  Country: US (occurrence: US)
  Receive Date: 20131108
  Receipt Date: 20131113
  Transmission Date: 20140711
  Serious: Yes (Other)
  Sender: FDA-Public Use
  Company Number: US-PFIZER INC-2013318294

PATIENT
  Age: 57 Year
  Sex: Female
  Weight: 58.96 kg

DRUGS (8)
  1. NEURONTIN [Suspect]
     Indication: PAIN
     Dosage: UNK
  2. NEURONTIN [Suspect]
     Indication: COMPLEX REGIONAL PAIN SYNDROME
  3. LIDOCAINE HCL [Suspect]
     Dosage: UNK
  4. MORPHINE [Concomitant]
     Dosage: UNK
  5. SOMA [Concomitant]
     Dosage: UNK
  6. TRANXENE [Concomitant]
     Dosage: UNK
  7. CLONIDINE [Concomitant]
     Dosage: UNK
  8. CLONAZEPAM [Concomitant]
     Dosage: UNK

REACTIONS (5)
  - Off label use [Unknown]
  - Contusion [Unknown]
  - Haemoptysis [Unknown]
  - Local swelling [Unknown]
  - Oedema peripheral [Unknown]
